FAERS Safety Report 5259539-1 (Version None)
Quarter: 2007Q1

REPORT INFORMATION
  Report Type: 
  Country: None (occurrence: None)
  Receive Date: 20061117
  Receipt Date: 20060914
  Transmission Date: 20070707
  Serious: Yes (Other)
  Sender: FDA-Public Use
  Company Number: US-JNJFOC-20060903803

PATIENT
  Age: 81 Year
  Sex: Male
  Weight: 81.6475 kg

DRUGS (8)
  1. LEVAQUIN [Suspect]
     Indication: INFECTION
     Dosage: 500 MG, IN 1 DAY, ORAL
     Route: 048
     Dates: start: 20060819, end: 20060909
  2. COUMADIN [Concomitant]
  3. GLUCOPHAGE (METFORMIN HYDROCHLORIDE) TABLETS [Concomitant]
  4. GLYBURIDE [Concomitant]
  5. DIGOXIN (DIGOXIN) TABLETS [Concomitant]
  6. ANTARA (FENOFIBRATE) TABLETS [Concomitant]
  7. NEURONTIN [Concomitant]
  8. .. [Concomitant]

REACTIONS (2)
  - HYPERGLYCAEMIA [None]
  - INTERNATIONAL NORMALISED RATIO INCREASED [None]
